FAERS Safety Report 16673495 (Version 1)
Quarter: 2019Q3

REPORT INFORMATION
  Report Type: Spontaneous
  Country: CA (occurrence: CA)
  Receive Date: 20190806
  Receipt Date: 20190806
  Transmission Date: 20191004
  Serious: Yes (Hospitalization, Other)
  Sender: FDA-Public Use
  Company Number: CA-SA-2019SA203004

PATIENT
  Age: 38 Year
  Sex: Male

DRUGS (8)
  1. CLOPIDOGREL BISULFATE. [Suspect]
     Active Substance: CLOPIDOGREL BISULFATE
     Indication: ELECTROCARDIOGRAM ST SEGMENT ELEVATION
  2. ACETYLSALICYLIC ACID [Suspect]
     Active Substance: ASPIRIN
     Indication: ELECTROCARDIOGRAM ST SEGMENT ELEVATION
  3. TENECTEPLASE [Suspect]
     Active Substance: TENECTEPLASE
     Indication: ELECTROCARDIOGRAM ST SEGMENT ELEVATION
  4. HEPARIN [Suspect]
     Active Substance: HEPARIN SODIUM
     Indication: ARTERIOVENOUS FISTULA
  5. ACETYLSALICYLIC ACID [Suspect]
     Active Substance: ASPIRIN
     Indication: ARTERIOVENOUS FISTULA
  6. CLOPIDOGREL BISULFATE. [Suspect]
     Active Substance: CLOPIDOGREL BISULFATE
     Indication: ARTERIOVENOUS FISTULA
  7. HEPARIN [Suspect]
     Active Substance: HEPARIN SODIUM
     Indication: ELECTROCARDIOGRAM ST SEGMENT ELEVATION
     Dosage: UNK UNK, UNK
     Route: 042
  8. TENECTEPLASE [Suspect]
     Active Substance: TENECTEPLASE
     Indication: ARTERIOVENOUS FISTULA

REACTIONS (5)
  - Aphasia [Recovered/Resolved]
  - Thrombosis [Recovering/Resolving]
  - Hemiparesis [Recovered/Resolved]
  - Left ventricular dysfunction [Recovering/Resolving]
  - Ejection fraction decreased [Recovering/Resolving]
